FAERS Safety Report 16560333 (Version 6)
Quarter: 2021Q4

REPORT INFORMATION
  Report Type: Spontaneous
  Country: US (occurrence: US)
  Receive Date: 20190711
  Receipt Date: 20211111
  Transmission Date: 20220303
  Serious: Yes (Other)
  Sender: FDA-Public Use
  Company Number: US-PFIZER INC-2016505893

PATIENT
  Age: 75 Year
  Sex: Female
  Weight: 68 kg

DRUGS (2)
  1. RELPAX [Suspect]
     Active Substance: ELETRIPTAN HYDROBROMIDE
     Indication: Migraine
     Dosage: 40 MG, AS NEEDED
     Route: 048
  2. RELPAX [Suspect]
     Active Substance: ELETRIPTAN HYDROBROMIDE
     Dosage: 20 MG, AS NEEDED
     Route: 048

REACTIONS (6)
  - Seizure [Unknown]
  - Drug dependence [Unknown]
  - Nervousness [Unknown]
  - Tearfulness [Unknown]
  - Malaise [Unknown]
  - Contraindicated product administered [Unknown]
